FAERS Safety Report 23753537 (Version 1)
Quarter: 2024Q2

REPORT INFORMATION
  Report Type: Spontaneous
  Country: US (occurrence: None)
  Receive Date: 20240417
  Receipt Date: 20240417
  Transmission Date: 20240716
  Serious: Yes (Other)
  Sender: FDA-Public Use
  Company Number: None

PATIENT
  Age: 69 Year
  Sex: Female
  Weight: 75.6 kg

DRUGS (1)
  1. AJOVY [Suspect]
     Active Substance: FREMANEZUMAB-VFRM
     Indication: Migraine
     Dosage: 225 MG MONTHLY SUBCUTANEOUS
     Route: 058

REACTIONS (2)
  - Peripheral swelling [None]
  - Pruritus [None]

NARRATIVE: CASE EVENT DATE: 20240329
